FAERS Safety Report 17975507 (Version 1)
Quarter: 2020Q3

REPORT INFORMATION
  Report Type: Other
  Country: US (occurrence: US)
  Receive Date: 20200702
  Receipt Date: 20200702
  Transmission Date: 20201103
  Serious: Yes (Life-Threatening, Hospitalization, Other)
  Sender: FDA-Public Use
  Company Number: US-C B FLEET CO INC-202006-US-002246

PATIENT
  Age: 39 Year
  Sex: Female

DRUGS (1)
  1. CALCIUM CARBONATE. [Suspect]
     Active Substance: CALCIUM CARBONATE
     Indication: DYSPEPSIA
     Dosage: 1.5G DAILY FOR 5 YEARS AND 6.0G [DAILY] FOR ONE WEEK
     Route: 048

REACTIONS (3)
  - Posterior reversible encephalopathy syndrome [Recovered/Resolved]
  - Milk-alkali syndrome [Recovered/Resolved]
  - Overdose [Recovered/Resolved]
